FAERS Safety Report 8372941-4 (Version None)
Quarter: 2012Q2

REPORT INFORMATION
  Report Type: 
  Country: None (occurrence: None)
  Receive Date: 20120521
  Receipt Date: 20120308
  Transmission Date: 20120825
  Serious: No
  Sender: FDA-Public Use
  Company Number: US-ASTRAZENECA-2012SE16975

PATIENT
  Sex: Male

DRUGS (2)
  1. PRILOSEC OTC [Suspect]
     Route: 048
     Dates: start: 20120306, end: 20120307
  2. TUMS /00108001/ [Concomitant]
     Route: 048
     Dates: start: 20120307, end: 20120307

REACTIONS (1)
  - HICCUPS [None]
